FAERS Safety Report 7521328-2 (Version None)
Quarter: 2011Q2

REPORT INFORMATION
  Report Type: 
  Country: None (occurrence: None)
  Receive Date: 20110524
  Receipt Date: 20110513
  Transmission Date: 20111010
  Serious: Yes (Hospitalization)
  Sender: FDA-Public Use
  Company Number: TPA2011A02329

PATIENT
  Age: 6 Decade
  Sex: 0

DRUGS (1)
  1. PIOGLITAZONE HCL [Suspect]
     Indication: CEREBROVASCULAR ACCIDENT
     Dosage: 1 IN 1 D, PER ORAL
     Route: 048
     Dates: end: 20110404

REACTIONS (1)
  - BLADDER TRANSITIONAL CELL CARCINOMA [None]
